FAERS Safety Report 11235657 (Version 2)
Quarter: 2015Q4

REPORT INFORMATION
  Report Type: Spontaneous
  Country: SG (occurrence: SG)
  Receive Date: 20150702
  Receipt Date: 20151113
  Transmission Date: 20160304
  Serious: Yes (Other)
  Sender: FDA-Public Use
  Company Number: SG-BAUSCH-BL-2015-016249

PATIENT
  Age: 75 Year
  Sex: Male

DRUGS (1)
  1. METRONIDAZOLE. [Suspect]
     Active Substance: METRONIDAZOLE
     Indication: PRODUCT USED FOR UNKNOWN INDICATION
     Route: 065

REACTIONS (1)
  - Dermatitis bullous [Unknown]

NARRATIVE: CASE EVENT DATE: 20150515
